FAERS Safety Report 8120896-X (Version None)
Quarter: 2012Q1

REPORT INFORMATION
  Report Type: 
  Country: None (occurrence: None)
  Receive Date: 20120208
  Receipt Date: 20120130
  Transmission Date: 20120608
  Serious: Yes (Other)
  Sender: FDA-Public Use
  Company Number: GB-ELI_LILLY_AND_COMPANY-GB201201008830

PATIENT
  Age: 35 Year
  Sex: Female

DRUGS (15)
  1. DULOXETIME HYDROCHLORIDE [Suspect]
     Dosage: UNK, UNKNOWN
     Route: 048
     Dates: start: 20110101
  2. SENNA [Concomitant]
  3. ACETAMINOPHEN AND CODEINE PHOSPHATE [Concomitant]
  4. DULOXETIME HYDROCHLORIDE [Suspect]
     Dosage: 60 MG, QD
     Route: 048
  5. NATRASLEEP [Concomitant]
  6. DIANETTE [Concomitant]
  7. FOLIC ACID [Concomitant]
  8. ASCORBIC ACID [Concomitant]
  9. CAMELLIA SINENSIS [Concomitant]
  10. MAGNESIUM [Concomitant]
  11. POTASSIUM [Concomitant]
  12. KELP [Concomitant]
  13. VITAMIN TAB [Concomitant]
  14. SILYBUM MARIANUM [Concomitant]
  15. VITAMIN B-12 [Concomitant]

REACTIONS (5)
  - MOTION SICKNESS [None]
  - PHOTOPHOBIA [None]
  - DRUG WITHDRAWAL SYNDROME [None]
  - NAUSEA [None]
  - VOMITING [None]
